FAERS Safety Report 10957096 (Version 1)
Quarter: 2015Q1

REPORT INFORMATION
  Report Type: Spontaneous
  Country: US (occurrence: US)
  Receive Date: 20150326
  Receipt Date: 20150326
  Transmission Date: 20150721
  Serious: Yes (Death)
  Sender: FDA-Public Use
  Company Number: US-PFIZER INC-2014293439

PATIENT
  Age: 38 Year
  Sex: Male

DRUGS (5)
  1. XALKORI [Suspect]
     Active Substance: CRIZOTINIB
     Indication: LUNG ADENOCARCINOMA STAGE IV
     Dosage: 250 MG, 2X/DAY (MORNING + EVENING)
     Dates: start: 201407, end: 2014
  2. MORPHINE [Concomitant]
     Active Substance: MORPHINE
  3. MORPHINE [Concomitant]
     Active Substance: MORPHINE
  4. METHADONE [Concomitant]
     Active Substance: METHADONE HYDROCHLORIDE
  5. XANAX [Concomitant]
     Active Substance: ALPRAZOLAM

REACTIONS (4)
  - Disease progression [Fatal]
  - Constipation [Unknown]
  - Lung adenocarcinoma stage IV [Fatal]
  - Nausea [Unknown]

NARRATIVE: CASE EVENT DATE: 2014
